FAERS Safety Report 7544043-8 (Version None)
Quarter: 2011Q2

REPORT INFORMATION
  Report Type: 
  Country: None (occurrence: None)
  Receive Date: 20110613
  Receipt Date: 20050926
  Transmission Date: 20111010
  Serious: Yes (Other)
  Sender: FDA-Public Use
  Company Number: PHHO2005CA15177

PATIENT
  Sex: Female

DRUGS (7)
  1. METFFORMIN HYDROCHLORIDE [Concomitant]
  2. ALTACE [Concomitant]
  3. SIMVASTATIN [Concomitant]
  4. PREMARIN [Concomitant]
  5. SANDOSTATIN LAR [Suspect]
     Indication: ACROMEGALY
     Dosage: 30 MG, EVERY 4 WEEKS
     Dates: start: 20021120
  6. TRAZODONE HCL [Concomitant]
  7. SYNTHROID [Concomitant]

REACTIONS (1)
  - MAMMOGRAM ABNORMAL [None]
